FAERS Safety Report 4606973-6 (Version None)
Quarter: 2005Q1

REPORT INFORMATION
  Report Type: 
  Country: None (occurrence: None)
  Receive Date: 20050309
  Receipt Date: 20050228
  Transmission Date: 20050727
  Serious: Yes (Hospitalization)
  Sender: FDA-Public Use
  Company Number: US-2004-033277

PATIENT
  Age: 48 Year
  Sex: Female

DRUGS (1)
  1. BETASERON [Suspect]
     Indication: PRIMARY PROGRESSIVE MULTIPLE SCLEROSIS
     Dosage: 8 MIU, EVERY 2D, SUBCUTANEOUS
     Route: 058
     Dates: start: 20020702

REACTIONS (2)
  - BLOOD GLUCOSE INCREASED [None]
  - BLOOD PRESSURE INCREASED [None]
